FAERS Safety Report 6450295-8 (Version None)
Quarter: 2009Q4

REPORT INFORMATION
  Report Type: 
  Country: None (occurrence: None)
  Receive Date: 20091123
  Receipt Date: 20091116
  Transmission Date: 20100525
  Serious: Yes (Other)
  Sender: FDA-Public Use
  Company Number: US-AMGEN-KDL374881

PATIENT
  Age: 56 Year
  Sex: Female

DRUGS (1)
  1. PROCRIT [Suspect]
     Indication: DIALYSIS
     Route: 065
     Dates: end: 20091112

REACTIONS (3)
  - ANXIETY [None]
  - HAEMOGLOBIN DECREASED [None]
  - RETICULOCYTE COUNT DECREASED [None]
